FAERS Safety Report 4595086-8 (Version None)
Quarter: 2005Q1

REPORT INFORMATION
  Report Type: 
  Country: None (occurrence: None)
  Receive Date: 20050301
  Receipt Date: 20041112
  Transmission Date: 20050727
  Serious: Yes (Hospitalization, Disabling)
  Sender: FDA-Public Use
  Company Number: DE-MERCK-0411DEU00392

PATIENT
  Age: 59 Year
  Sex: Female

DRUGS (6)
  1. VIOXX [Suspect]
     Indication: POLYARTHRITIS
     Route: 048
     Dates: start: 20020308, end: 20020324
  2. VIOXX [Suspect]
     Route: 048
     Dates: start: 20020325, end: 20041004
  3. ALPRAZOLAM [Concomitant]
     Route: 048
  4. POTASSIUM BICARBONATE AND POTASSIUM CITRATE [Concomitant]
     Route: 048
  5. SPIRONOLACTONE [Concomitant]
     Route: 048
  6. ZOCOR [Concomitant]
     Route: 048

REACTIONS (12)
  - ADVERSE EVENT [None]
  - ANGINA PECTORIS [None]
  - ARRHYTHMIA [None]
  - DIABETES MELLITUS [None]
  - DIZZINESS [None]
  - FATIGUE [None]
  - FEELING ABNORMAL [None]
  - HYPERHIDROSIS [None]
  - HYPERTENSION [None]
  - OEDEMA PERIPHERAL [None]
  - POLYARTHRITIS [None]
  - SYNCOPE [None]
